FAERS Safety Report 8085253-3 (Version None)
Quarter: 2012Q1

REPORT INFORMATION
  Report Type: 
  Country: None (occurrence: None)
  Receive Date: 20120128
  Receipt Date: 20110321
  Transmission Date: 20120608
  Serious: No
  Sender: FDA-Public Use
  Company Number: US-ABBOTT-11P-163-0713333-00

PATIENT
  Sex: Male
  Weight: 88.53 kg

DRUGS (12)
  1. HUMIRA [Suspect]
     Indication: RHEUMATOID ARTHRITIS
     Route: 058
     Dates: start: 20100801
  2. LEVAMIR [Concomitant]
     Indication: DIABETES MELLITUS
     Route: 058
  3. FOLIC ACID [Concomitant]
     Indication: VITAMIN SUPPLEMENTATION
     Route: 048
  4. ASPIRIN [Concomitant]
     Indication: CARDIOVASCULAR EVENT PROPHYLAXIS
     Route: 048
  5. METHOTREXATE [Concomitant]
     Indication: RHEUMATOID ARTHRITIS
     Dosage: LUQUID FOR INJECTION-DRINKS IT 15MG/WEEK
     Route: 048
  6. IBUPROFEN [Concomitant]
     Indication: ARTHRALGIA
     Dosage: 3 IN 1 DAY; AS NEEDED
     Route: 048
  7. WELLBUTRIN [Concomitant]
     Indication: DEPRESSION
     Route: 048
  8. DIAZEPAM [Concomitant]
     Indication: INTENTION TREMOR
     Dosage: 1/2 OF 5MG-1/2 HS; 1 IN 1 DAY
     Route: 048
  9. METFFORMIN HYDROCHLORIDE [Concomitant]
     Indication: DIABETES MELLITUS
     Route: 048
  10. MULTI-VITAMIN [Concomitant]
     Indication: VITAMIN SUPPLEMENTATION
     Route: 048
  11. WELLBUTRIN [Concomitant]
     Indication: SEASONAL AFFECTIVE DISORDER
  12. SIMVASTATIN [Concomitant]
     Indication: BLOOD CHOLESTEROL INCREASED
     Route: 048

REACTIONS (8)
  - GASTROENTERITIS [None]
  - PARANASAL SINUS HYPERSECRETION [None]
  - IMPAIRED HEALING [None]
  - SINUSITIS [None]
  - PYREXIA [None]
  - VOMITING [None]
  - DIARRHOEA [None]
  - FATIGUE [None]
